FAERS Safety Report 19969212 (Version 1)
Quarter: 2021Q4

REPORT INFORMATION
  Report Type: Spontaneous
  Country: US (occurrence: US)
  Receive Date: 20211019
  Receipt Date: 20211019
  Transmission Date: 20220304
  Serious: No
  Sender: FDA-Public Use
  Company Number: US-PFIZER INC-202101254376

PATIENT
  Age: 50 Year
  Sex: Female
  Weight: 65.76 kg

DRUGS (1)
  1. CHANTIX [Suspect]
     Active Substance: VARENICLINE TARTRATE
     Dosage: UNK
     Dates: start: 2021, end: 2021

REACTIONS (6)
  - Malaise [Unknown]
  - Vomiting [Unknown]
  - Decreased appetite [Unknown]
  - Depression [Unknown]
  - Asthenia [Unknown]
  - Recalled product administered [Unknown]

NARRATIVE: CASE EVENT DATE: 20210101
